FAERS Safety Report 7471066-X (Version None)
Quarter: 2011Q2

REPORT INFORMATION
  Report Type: 
  Country: None (occurrence: None)
  Receive Date: 20110510
  Receipt Date: 20110428
  Transmission Date: 20111010
  Serious: Yes (Other)
  Sender: FDA-Public Use
  Company Number: US-JNJFOC-20110412212

PATIENT
  Sex: Female
  Weight: 95.26 kg

DRUGS (1)
  1. REMICADE [Suspect]
     Indication: CROHN'S DISEASE
     Dosage: PATIENT HAS BEEN ON REMICADE FOR UC SINCE ABOUT 2005 (AT LEAST } 5 YEARS)
     Route: 042

REACTIONS (2)
  - UPPER LIMB FRACTURE [None]
  - INFECTION [None]
